FAERS Safety Report 11479088 (Version 1)
Quarter: 2015Q3

REPORT INFORMATION
  Report Type: Spontaneous
  Country: PT (occurrence: PT)
  Receive Date: 20150909
  Receipt Date: 20150909
  Transmission Date: 20151125
  Serious: Yes (Hospitalization)
  Sender: FDA-Public Use
  Company Number: PT-SYMPLMED PHARMACEUTICALS-2015SYM00198

PATIENT
  Age: 86 Year
  Sex: Male

DRUGS (7)
  1. ACEON [Suspect]
     Active Substance: PERINDOPRIL ERBUMINE
     Indication: POST PROCEDURAL MYOCARDIAL INFARCTION
     Dosage: UNK
     Dates: start: 201401, end: 20140618
  2. ACETYLSALICYLIC ACID [Suspect]
     Active Substance: ASPIRIN
     Indication: POST PROCEDURAL MYOCARDIAL INFARCTION
     Dosage: UNK
     Dates: start: 2014
  3. PANTOPRAZOLE [Suspect]
     Active Substance: PANTOPRAZOLE SODIUM
     Indication: POST PROCEDURAL MYOCARDIAL INFARCTION
     Dosage: UNK
     Dates: start: 2014
  4. FUROSEMIDE. [Concomitant]
     Active Substance: FUROSEMIDE
     Indication: POST PROCEDURAL MYOCARDIAL INFARCTION
     Dosage: UNK
     Dates: start: 201401
  5. CLOPIDOGREL BISULFATE. [Concomitant]
     Active Substance: CLOPIDOGREL BISULFATE
     Indication: POST PROCEDURAL MYOCARDIAL INFARCTION
     Dosage: UNK
     Dates: start: 201401
  6. CARVEDILOL. [Concomitant]
     Active Substance: CARVEDILOL
     Indication: POST PROCEDURAL MYOCARDIAL INFARCTION
     Dosage: UNK
     Dates: start: 201401
  7. SPIRONOLACTONE. [Concomitant]
     Active Substance: SPIRONOLACTONE
     Indication: POST PROCEDURAL MYOCARDIAL INFARCTION
     Dosage: UNK
     Dates: start: 201401

REACTIONS (1)
  - Colitis microscopic [Recovered/Resolved]

NARRATIVE: CASE EVENT DATE: 2014
